FAERS Safety Report 19568893 (Version 15)
Quarter: 2023Q2

REPORT INFORMATION
  Report Type: Spontaneous
  Country: GB (occurrence: GB)
  Receive Date: 20210716
  Receipt Date: 20230413
  Transmission Date: 20230721
  Serious: Yes (Death, Life-Threatening, Hospitalization, Other)
  Sender: FDA-Public Use
  Company Number: GB-ROCHE-2677215

PATIENT
  Age: 71 Year
  Sex: Female
  Weight: 51.2 kg

DRUGS (108)
  1. CARBOPLATIN [Suspect]
     Active Substance: CARBOPLATIN
     Indication: Small cell lung cancer extensive stage
     Route: 065
     Dates: start: 20200729
  2. CARBOPLATIN [Suspect]
     Active Substance: CARBOPLATIN
     Indication: Non-small cell lung cancer
     Dosage: UNKNOWN
     Route: 065
  3. CIPROFLOXACIN [Suspect]
     Active Substance: CIPROFLOXACIN
     Indication: Prophylaxis
     Dosage: UNKNOWN
     Route: 065
     Dates: start: 20200827
  4. CIPROFLOXACIN [Suspect]
     Active Substance: CIPROFLOXACIN
     Dosage: UNKNOWN
     Route: 065
     Dates: start: 202007
  5. CIPROFLOXACIN [Suspect]
     Active Substance: CIPROFLOXACIN
     Dosage: UNKNOWN
     Route: 065
     Dates: start: 20200907
  6. CIPROFLOXACIN [Suspect]
     Active Substance: CIPROFLOXACIN
     Route: 065
     Dates: start: 20200827
  7. CIPROFLOXACIN [Suspect]
     Active Substance: CIPROFLOXACIN
     Dosage: UNK (0.5 DAY)
     Route: 065
     Dates: start: 20200827
  8. CIPROFLOXACIN [Suspect]
     Active Substance: CIPROFLOXACIN
     Dosage: UNKNOWN
     Route: 065
  9. FLUCONAZOLE [Suspect]
     Active Substance: FLUCONAZOLE
     Indication: Skin candida
     Dosage: UNKNOWN
     Route: 065
     Dates: start: 20200729
  10. FLUCONAZOLE [Suspect]
     Active Substance: FLUCONAZOLE
     Indication: Candida infection
     Dosage: UNKNOWN
     Route: 065
  11. FLUCONAZOLE [Suspect]
     Active Substance: FLUCONAZOLE
     Dosage: UNKNOWN
     Route: 065
  12. FLUCONAZOLE [Suspect]
     Active Substance: FLUCONAZOLE
     Dosage: UNKNOWN
     Route: 065
  13. FLUCONAZOLE [Suspect]
     Active Substance: FLUCONAZOLE
     Dosage: UNKNOWN
     Route: 065
  14. ATEZOLIZUMAB [Suspect]
     Active Substance: ATEZOLIZUMAB
     Indication: Small cell lung cancer extensive stage
     Dosage: MOST RECENT DOSE OF ATEZOLIZUMAB PRIOR TO ADVERSE EVENT (NAUSEA) ONSET ON 19/AUG/2020
     Route: 041
     Dates: start: 20200729
  15. ATEZOLIZUMAB [Suspect]
     Active Substance: ATEZOLIZUMAB
     Indication: Small cell lung cancer
     Dosage: UNKNOWN
     Route: 065
  16. ATEZOLIZUMAB [Suspect]
     Active Substance: ATEZOLIZUMAB
     Indication: Transitional cell carcinoma
     Route: 041
     Dates: start: 20200819
  17. ATEZOLIZUMAB [Suspect]
     Active Substance: ATEZOLIZUMAB
     Indication: Non-small cell lung cancer
     Route: 041
     Dates: start: 20200729
  18. ETOPOSIDE [Suspect]
     Active Substance: ETOPOSIDE
     Indication: Small cell lung cancer extensive stage
     Route: 048
     Dates: start: 20200730
  19. ETOPOSIDE [Suspect]
     Active Substance: ETOPOSIDE
     Indication: Non-small cell lung cancer
     Route: 042
     Dates: start: 20200729
  20. ETOPOSIDE [Suspect]
     Active Substance: ETOPOSIDE
     Dosage: UNKNOWN
     Route: 016
     Dates: start: 20200729
  21. ZOPICLONE [Suspect]
     Active Substance: ZOPICLONE
     Indication: Prophylaxis
     Route: 065
     Dates: start: 20200731
  22. BENZYDAMINE [Suspect]
     Active Substance: BENZYDAMINE
     Indication: Prophylaxis
     Dosage: UNKNOWN
     Route: 065
     Dates: start: 20200819
  23. MORPHINE SULFATE [Suspect]
     Active Substance: MORPHINE SULFATE
     Indication: Prophylaxis
     Dosage: UNKNOWN
     Route: 065
     Dates: start: 20200825
  24. MORPHINE SULFATE [Suspect]
     Active Substance: MORPHINE SULFATE
     Indication: Pain
     Dosage: UNKNOWN
     Route: 065
     Dates: start: 20200731
  25. MORPHINE SULFATE [Suspect]
     Active Substance: MORPHINE SULFATE
     Dosage: UNKNOWN
     Route: 065
     Dates: start: 20200727
  26. AMLODIPINE [Suspect]
     Active Substance: AMLODIPINE BESYLATE
     Indication: Hypertension
     Route: 065
  27. AMLODIPINE [Suspect]
     Active Substance: AMLODIPINE BESYLATE
     Dosage: UNKNOWN
     Route: 065
  28. AMLODIPINE [Suspect]
     Active Substance: AMLODIPINE BESYLATE
     Route: 065
  29. AMLODIPINE [Suspect]
     Active Substance: AMLODIPINE BESYLATE
     Dosage: UNKNOWN
     Route: 065
  30. AMLODIPINE [Suspect]
     Active Substance: AMLODIPINE BESYLATE
     Dosage: UNKNOWN
     Route: 065
  31. AMLODIPINE [Suspect]
     Active Substance: AMLODIPINE BESYLATE
     Dosage: UNKNOWN
     Route: 065
  32. ACETAMINOPHEN [Suspect]
     Active Substance: ACETAMINOPHEN
     Indication: Headache
     Dosage: UNKNOWN
     Route: 065
  33. ACETAMINOPHEN [Suspect]
     Active Substance: ACETAMINOPHEN
     Indication: Pain
  34. LACTULOSE [Suspect]
     Active Substance: LACTULOSE
     Indication: Prophylaxis
     Dosage: UNKNOWN
     Route: 065
     Dates: start: 20200729
  35. LACTULOSE [Suspect]
     Active Substance: LACTULOSE
     Dosage: UNKNOWN
     Route: 065
  36. LACTULOSE [Suspect]
     Active Substance: LACTULOSE
     Dosage: UNKNOWN
     Route: 065
  37. LACTULOSE [Suspect]
     Active Substance: LACTULOSE
     Dosage: UNKNOWN
     Route: 065
  38. LACTULOSE [Suspect]
     Active Substance: LACTULOSE
     Dosage: UNKNOWN
     Route: 065
  39. LACTULOSE [Suspect]
     Active Substance: LACTULOSE
     Dosage: UNKNOWN
     Route: 065
  40. LACTULOSE [Suspect]
     Active Substance: LACTULOSE
     Dosage: UNKNOWN
     Route: 065
  41. LACTULOSE [Suspect]
     Active Substance: LACTULOSE
     Dosage: UNKNOWN
     Route: 065
  42. ALBUTEROL [Suspect]
     Active Substance: ALBUTEROL
     Indication: Prophylaxis
     Dosage: UNKNOWN
     Route: 065
     Dates: start: 20200729
  43. ALBUTEROL [Suspect]
     Active Substance: ALBUTEROL
     Dosage: UNKNOWN
     Route: 065
  44. ALBUTEROL [Suspect]
     Active Substance: ALBUTEROL
     Dosage: UNKNOWN
     Route: 065
  45. ALBUTEROL [Suspect]
     Active Substance: ALBUTEROL
     Dosage: UNKNOWN
     Route: 065
  46. VENLAFAXINE [Suspect]
     Active Substance: VENLAFAXINE HYDROCHLORIDE
     Indication: Depression
     Route: 065
     Dates: start: 20200820
  47. VENLAFAXINE [Suspect]
     Active Substance: VENLAFAXINE HYDROCHLORIDE
     Dosage: UNKNOWN
     Route: 065
  48. VENLAFAXINE [Suspect]
     Active Substance: VENLAFAXINE HYDROCHLORIDE
     Dosage: UNK (0.5 DAY)
     Route: 065
     Dates: start: 20200820
  49. VENLAFAXINE [Suspect]
     Active Substance: VENLAFAXINE HYDROCHLORIDE
     Dosage: UNKNOWN
     Route: 065
  50. AMOXICILLIN [Suspect]
     Active Substance: AMOXICILLIN
     Indication: Mouth ulceration
     Dosage: UNKNOWN
     Route: 065
     Dates: start: 20200810, end: 20200816
  51. AMOXICILLIN [Suspect]
     Active Substance: AMOXICILLIN
     Dosage: UNKNOWN
     Route: 065
  52. FORMOTEROL [Suspect]
     Active Substance: FORMOTEROL
     Indication: Hypertension
     Route: 065
     Dates: start: 20200301
  53. FORMOTEROL [Suspect]
     Active Substance: FORMOTEROL
     Route: 065
     Dates: start: 20200301
  54. LANSOPRAZOLE [Suspect]
     Active Substance: LANSOPRAZOLE
     Indication: Prophylaxis
     Route: 065
     Dates: start: 20170101
  55. LANSOPRAZOLE [Suspect]
     Active Substance: LANSOPRAZOLE
     Indication: Hypertension
  56. TIOTROPIUM [Suspect]
     Active Substance: TIOTROPIUM
     Indication: Chronic obstructive pulmonary disease
     Dosage: UNKNOWN, DAILY
     Route: 065
     Dates: start: 20200729
  57. TIOTROPIUM [Suspect]
     Active Substance: TIOTROPIUM
     Dosage: UNKNOWN
     Route: 065
  58. TIOTROPIUM [Suspect]
     Active Substance: TIOTROPIUM
     Route: 065
  59. TIOTROPIUM [Suspect]
     Active Substance: TIOTROPIUM
     Dosage: UNKNOWN
     Route: 065
  60. TIOTROPIUM [Suspect]
     Active Substance: TIOTROPIUM
     Dosage: UNKNOWN
     Route: 065
  61. TIOTROPIUM [Suspect]
     Active Substance: TIOTROPIUM
     Dosage: UNKNOWN
     Route: 065
  62. TIOTROPIUM [Suspect]
     Active Substance: TIOTROPIUM
     Dosage: UNKNOWN
     Route: 065
  63. DEXAMETHASONE [Suspect]
     Active Substance: DEXAMETHASONE
     Indication: Dysphagia
     Route: 065
     Dates: start: 20200826
  64. DEXAMETHASONE [Suspect]
     Active Substance: DEXAMETHASONE
     Indication: Prophylaxis
     Dosage: UNKNOWN
     Route: 065
  65. DEXAMETHASONE [Suspect]
     Active Substance: DEXAMETHASONE
     Dosage: UNKNOWN
     Route: 065
  66. DEXAMETHASONE [Suspect]
     Active Substance: DEXAMETHASONE
     Dosage: 0.5 DAY
     Route: 065
  67. DEXAMETHASONE [Suspect]
     Active Substance: DEXAMETHASONE
     Dosage: 0.5 DAY
     Route: 065
  68. DEXAMETHASONE [Suspect]
     Active Substance: DEXAMETHASONE
     Dosage: 0.5 DAY
     Route: 065
  69. DEXAMETHASONE [Suspect]
     Active Substance: DEXAMETHASONE
     Dosage: UNKNOWN
     Route: 065
  70. DEXAMETHASONE [Suspect]
     Active Substance: DEXAMETHASONE
     Dosage: UNKNOWN
     Route: 065
  71. CYCLIZINE [Suspect]
     Active Substance: CYCLIZINE
     Indication: Vomiting
     Route: 065
     Dates: start: 20210729
  72. CYCLIZINE [Suspect]
     Active Substance: CYCLIZINE
     Indication: Neutropenic sepsis
     Dosage: DOSE (1.3 DAY)
     Route: 065
  73. CYCLIZINE [Suspect]
     Active Substance: CYCLIZINE
     Dosage: DOSE (1.3 DAY)
     Route: 065
  74. CYCLIZINE [Suspect]
     Active Substance: CYCLIZINE
     Dosage: DOSE (1.3 DAY)
     Route: 065
  75. CYCLIZINE [Suspect]
     Active Substance: CYCLIZINE
     Dosage: 0.25 DAY
     Route: 065
  76. CEFTAZIDIME [Suspect]
     Active Substance: CEFTAZIDIME
     Indication: Neutropenic sepsis
     Dosage: UNKNOWN
     Route: 065
  77. VORICONAZOLE [Suspect]
     Active Substance: VORICONAZOLE
     Indication: Neutropenic sepsis
     Route: 065
     Dates: start: 20200830
  78. LINEZOLID [Suspect]
     Active Substance: LINEZOLID
     Indication: Neutropenic sepsis
     Dosage: UNKNOWN
     Route: 065
     Dates: start: 20200830
  79. CLOPIDOGREL [Suspect]
     Active Substance: CLOPIDOGREL BISULFATE
     Indication: Hypertension
     Dosage: UNKNOWN, DAILY
     Route: 065
     Dates: start: 20200729
  80. CLOPIDOGREL [Suspect]
     Active Substance: CLOPIDOGREL BISULFATE
     Dosage: UNKNOWN
     Route: 065
  81. CLOPIDOGREL [Suspect]
     Active Substance: CLOPIDOGREL BISULFATE
     Route: 065
  82. CLOPIDOGREL [Suspect]
     Active Substance: CLOPIDOGREL BISULFATE
     Route: 065
  83. CLOPIDOGREL [Suspect]
     Active Substance: CLOPIDOGREL BISULFATE
     Route: 065
  84. MORPHINE SULFATE [Suspect]
     Active Substance: MORPHINE SULFATE
     Indication: Pain
     Dosage: UNKNOWN, DAILY
     Route: 065
     Dates: start: 20200727
  85. MORPHINE SULFATE [Suspect]
     Active Substance: MORPHINE SULFATE
     Dosage: UNKNOWN, DAILY
     Route: 065
     Dates: start: 20200731
  86. MORPHINE SULFATE [Suspect]
     Active Substance: MORPHINE SULFATE
     Dosage: UNKNOWN, DAILY
     Route: 065
     Dates: start: 20200825
  87. MORPHINE SULFATE [Suspect]
     Active Substance: MORPHINE SULFATE
     Route: 065
     Dates: start: 20200727
  88. MORPHINE SULFATE [Suspect]
     Active Substance: MORPHINE SULFATE
     Dosage: UNKNOWN
     Route: 065
     Dates: start: 20200825
  89. ACETAMINOPHEN\CODEINE PHOSPHATE [Suspect]
     Active Substance: ACETAMINOPHEN\CODEINE PHOSPHATE
     Indication: Pain
     Dosage: UNKNOWN
     Route: 065
     Dates: start: 20200729
  90. ACETAMINOPHEN\CODEINE PHOSPHATE [Suspect]
     Active Substance: ACETAMINOPHEN\CODEINE PHOSPHATE
     Indication: Headache
     Dosage: UNKNOWN
     Route: 065
  91. ACETAMINOPHEN\CODEINE PHOSPHATE [Suspect]
     Active Substance: ACETAMINOPHEN\CODEINE PHOSPHATE
     Dosage: 0.5 DAY
     Route: 065
  92. ACETAMINOPHEN\CODEINE PHOSPHATE [Suspect]
     Active Substance: ACETAMINOPHEN\CODEINE PHOSPHATE
     Route: 065
  93. ACETAMINOPHEN\CODEINE PHOSPHATE [Suspect]
     Active Substance: ACETAMINOPHEN\CODEINE PHOSPHATE
     Dosage: 0.5 DAY
     Route: 065
  94. ACETAMINOPHEN\CODEINE PHOSPHATE [Suspect]
     Active Substance: ACETAMINOPHEN\CODEINE PHOSPHATE
     Dosage: UNKNOWN
     Route: 065
  95. ACETAMINOPHEN\CODEINE PHOSPHATE [Suspect]
     Active Substance: ACETAMINOPHEN\CODEINE PHOSPHATE
     Dosage: 0.5 DAY
     Route: 065
  96. SANDO-K [Concomitant]
     Indication: Prophylaxis
     Dosage: UNKNOWN
     Route: 065
     Dates: start: 20200819
  97. SANDO-K [Concomitant]
     Route: 065
     Dates: start: 20200828, end: 20200901
  98. SANDO-K [Concomitant]
     Dosage: UNKNOWN
     Route: 065
     Dates: start: 20200819
  99. SANDO-K [Concomitant]
     Route: 065
     Dates: start: 20200828, end: 20200901
  100. SANDO-K [Concomitant]
     Dosage: 0.5 DAY
     Route: 065
     Dates: start: 20200819
  101. MAGNESIUM [Concomitant]
     Active Substance: MAGNESIUM
     Indication: Product used for unknown indication
     Dosage: UNKNOWN
     Route: 065
     Dates: start: 20200819, end: 20200819
  102. PHOSPHORIC ACID [Concomitant]
     Active Substance: PHOSPHORIC ACID
     Indication: Product used for unknown indication
     Dosage: UNKNOWN
     Route: 065
     Dates: start: 20200825, end: 20200825
  103. UNSPECIFIED INGREDIENT [Concomitant]
     Active Substance: UNSPECIFIED INGREDIENT
     Indication: Product used for unknown indication
     Dosage: UNKNOWN
     Route: 065
     Dates: start: 20200825, end: 20200825
  104. METOCLOPRAMIDE [Concomitant]
     Active Substance: METOCLOPRAMIDE
     Indication: Vomiting
     Route: 065
  105. SPIRIVA [Concomitant]
     Active Substance: TIOTROPIUM BROMIDE MONOHYDRATE
     Indication: Chronic obstructive pulmonary disease
     Dosage: UNKNOWN
     Route: 065
  106. SPIRIVA [Concomitant]
     Active Substance: TIOTROPIUM BROMIDE MONOHYDRATE
     Route: 065
  107. SPIRIVA [Concomitant]
     Active Substance: TIOTROPIUM BROMIDE MONOHYDRATE
     Dosage: UNKNOWN
     Route: 065
  108. ONDANSETRON [Concomitant]
     Active Substance: ONDANSETRON
     Indication: Product used for unknown indication
     Route: 065
     Dates: start: 20200729, end: 20200729

REACTIONS (27)
  - Death [Fatal]
  - Neutropenic sepsis [Fatal]
  - Dysphagia [Fatal]
  - Condition aggravated [Fatal]
  - Nausea [Fatal]
  - Hypokalaemia [Fatal]
  - Mouth ulceration [Fatal]
  - Constipation [Fatal]
  - Productive cough [Fatal]
  - Mucosal inflammation [Fatal]
  - Hypomagnesaemia [Fatal]
  - Anaemia [Fatal]
  - Skin candida [Fatal]
  - Dehydration [Fatal]
  - Dyspnoea [Fatal]
  - Headache [Fatal]
  - Diarrhoea [Fatal]
  - Depression [Fatal]
  - Candida infection [Not Recovered/Not Resolved]
  - Product use in unapproved indication [Fatal]
  - Vomiting [Fatal]
  - Nervous system disorder [Fatal]
  - Gait disturbance [Fatal]
  - Asthenia [Fatal]
  - Decreased appetite [Fatal]
  - Neutrophil count decreased [Fatal]
  - Balance disorder [Fatal]

NARRATIVE: CASE EVENT DATE: 20200730
